FAERS Safety Report 19653904 (Version 1)
Quarter: 2021Q3

REPORT INFORMATION
  Report Type: Spontaneous
  Country: US (occurrence: US)
  Receive Date: 20210803
  Receipt Date: 20210803
  Transmission Date: 20211014
  Serious: No
  Sender: FDA-Public Use
  Company Number: US-PFIZER INC-2021516065

PATIENT
  Age: 77 Year
  Sex: Female

DRUGS (1)
  1. IBRANCE [Suspect]
     Active Substance: PALBOCICLIB
     Indication: BREAST CANCER FEMALE
     Dosage: 100 MG, CYCLIC (100 MG ONCE A DAY (QD) FOR 21 DAYS)
     Dates: start: 20210202

REACTIONS (1)
  - Nocturia [Not Recovered/Not Resolved]

NARRATIVE: CASE EVENT DATE: 202104
